FAERS Safety Report 7671104-5 (Version None)
Quarter: 2011Q3

REPORT INFORMATION
  Report Type: 
  Country: None (occurrence: None)
  Receive Date: 20110808
  Receipt Date: 20110808
  Transmission Date: 20111222
  Serious: Yes (Hospitalization)
  Sender: FDA-Public Use
  Company Number: None

PATIENT
  Sex: Female
  Weight: 80.9 kg

DRUGS (3)
  1. CISPLATIN [Suspect]
     Dosage: 142 MG
  2. FLUOROURACIL [Suspect]
     Dosage: 7550 MG
  3. ERBITUX [Suspect]
     Dosage: 472 MG

REACTIONS (3)
  - DIARRHOEA [None]
  - NAUSEA [None]
  - VOMITING [None]
